FAERS Safety Report 5413418-5 (Version None)
Quarter: 2007Q3

REPORT INFORMATION
  Report Type: 
  Country: None (occurrence: None)
  Receive Date: 20070810
  Receipt Date: 20070725
  Transmission Date: 20080115
  Serious: Yes (Hospitalization)
  Sender: FDA-Public Use
  Company Number: DSA_30241_2007

PATIENT
  Age: 70 Year
  Sex: Male
  Weight: 90 kg

DRUGS (8)
  1. RENIVACE (RENIVACE - ENALAPRIL MALEATE) 2.5 MG [Suspect]
     Indication: CARDIAC FAILURE
     Dosage: (2.5 MG QD ORAL)
     Route: 048
     Dates: start: 20070620, end: 20070709
  2. EPALRESTAT (KINEDAK-EPALRESTAT) 50 MG [Suspect]
     Indication: DIABETIC NEUROPATHY
     Dosage: (50 MG TID ORAL
     Route: 048
     Dates: start: 20070621, end: 20070709
  3. ALDACTONE [Concomitant]
  4. ARTIST [Concomitant]
  5. DIGOSIN [Concomitant]
  6. LASIX [Concomitant]
  7. SLOW-K [Concomitant]
  8. WARFARIN POTASSIUM [Concomitant]

REACTIONS (6)
  - ALANINE AMINOTRANSFERASE INCREASED [None]
  - ASPARTATE AMINOTRANSFERASE INCREASED [None]
  - BLOOD BILIRUBIN INCREASED [None]
  - HYPOKALAEMIA [None]
  - LEUKOPENIA [None]
  - NEUTROPHIL COUNT DECREASED [None]
